FAERS Safety Report 9841132 (Version 4)
Quarter: 2014Q1

REPORT INFORMATION
  Report Type: Spontaneous
  Country: FR (occurrence: FR)
  Receive Date: 20140124
  Receipt Date: 20140307
  Transmission Date: 20141002
  Serious: Yes (Death, Other)
  Sender: FDA-Public Use
  Company Number: FR-ASTRAZENECA-2014SE04247

PATIENT
  Age: 53 Year
  Sex: Female

DRUGS (1)
  1. CAPRELSA [Suspect]
     Indication: MEDULLARY THYROID CANCER
     Dosage: DOSE REDUCED TO 200 MG PER DAY AND THEN TO 100 MG PER DAY
     Route: 048
     Dates: start: 201309, end: 20140127

REACTIONS (7)
  - Cardiomyopathy [Fatal]
  - Renal failure [Not Recovered/Not Resolved]
  - Metrorrhagia [Recovering/Resolving]
  - Uterine mass [Not Recovered/Not Resolved]
  - Microangiopathy [Not Recovered/Not Resolved]
  - Renal tubular disorder [Not Recovered/Not Resolved]
  - Von Willebrand^s factor antigen increased [Unknown]
